FAERS Safety Report 8617200-7 (Version None)
Quarter: 2012Q3

REPORT INFORMATION
  Report Type: 
  Country: None (occurrence: None)
  Receive Date: 20120823
  Receipt Date: 20120813
  Transmission Date: 20120928
  Serious: Yes (Other)
  Sender: FDA-Public Use
  Company Number: US-RB-043467-12

PATIENT
  Age: 60 Year
  Sex: Female

DRUGS (2)
  1. SUBOXONE [Suspect]
     Route: 060
     Dates: start: 20110101, end: 20120501
  2. SUBOXONE [Suspect]
     Indication: DRUG DEPENDENCE
     Dosage: VARIES
     Route: 060
     Dates: start: 20120501, end: 20120701

REACTIONS (7)
  - SUICIDAL IDEATION [None]
  - DRUG WITHDRAWAL SYNDROME [None]
  - UNDERDOSE [None]
  - BACK PAIN [None]
  - DEPRESSION [None]
  - FEELING ABNORMAL [None]
  - WRONG TECHNIQUE IN DRUG USAGE PROCESS [None]
